FAERS Safety Report 7800968-7 (Version None)
Quarter: 2011Q4

REPORT INFORMATION
  Report Type: 
  Country: None (occurrence: None)
  Receive Date: 20111007
  Receipt Date: 20111005
  Transmission Date: 20120403
  Serious: Yes (Hospitalization, Other)
  Sender: FDA-Public Use
  Company Number: US-BRISTOL-MYERS SQUIBB COMPANY-16100141

PATIENT
  Age: 62 Year
  Sex: Male
  Weight: 112 kg

DRUGS (2)
  1. IPILIMUMAB [Suspect]
     Indication: MALIGNANT MELANOMA
     Route: 042
     Dates: start: 20110629, end: 20110720
  2. LEUKINE [Suspect]
     Indication: MALIGNANT MELANOMA
     Route: 058
     Dates: start: 20110629, end: 20110802

REACTIONS (3)
  - SYNCOPE [None]
  - DEHYDRATION [None]
  - HYPOTENSION [None]
